FAERS Safety Report 11188754 (Version 1)
Quarter: 2015Q2

REPORT INFORMATION
  Report Type: Spontaneous
  Country: CA (occurrence: CA)
  Receive Date: 20150615
  Receipt Date: 20150615
  Transmission Date: 20150821
  Serious: Yes (Death)
  Sender: FDA-Public Use
  Company Number: CA-BEH-200814418

PATIENT
  Age: 0 Day
  Sex: Female
  Weight: 2.2 kg

DRUGS (3)
  1. CYTOGAM [Suspect]
     Active Substance: HUMAN CYTOMEGALOVIRUS IMMUNE GLOBULIN
     Route: 042
     Dates: start: 20080825, end: 20080825
  2. CYTOGAM [Suspect]
     Active Substance: HUMAN CYTOMEGALOVIRUS IMMUNE GLOBULIN
     Dosage: DAILY DOSE QUANTITY: 10, DAILY DOSE UNIT: G
     Route: 042
     Dates: start: 20080825, end: 20080825
  3. CYTOGAM [Suspect]
     Active Substance: HUMAN CYTOMEGALOVIRUS IMMUNE GLOBULIN
     Indication: ANTIVIRAL PROPHYLAXIS
     Route: 042
     Dates: start: 20080825, end: 20080825

REACTIONS (5)
  - Drug ineffective for unapproved indication [Fatal]
  - Ascites [Fatal]
  - Cerebral ventricle dilatation [Fatal]
  - Cerebral calcification [Fatal]
  - Congenital cytomegalovirus infection [Fatal]

NARRATIVE: CASE EVENT DATE: 20080915
